FAERS Safety Report 13280783 (Version 3)
Quarter: 2017Q2

REPORT INFORMATION
  Report Type: Spontaneous
  Country: US (occurrence: US)
  Receive Date: 20170301
  Receipt Date: 20170426
  Transmission Date: 20170830
  Serious: Yes (Other)
  Sender: FDA-Public Use
  Company Number: PHEH2017US006070

PATIENT
  Sex: Male
  Weight: 82.5 kg

DRUGS (3)
  1. AFINITOR [Suspect]
     Active Substance: EVEROLIMUS
     Dosage: 10 MG, QD
     Route: 048
  2. LENVATINIB [Suspect]
     Active Substance: LENVATINIB
     Indication: RENAL CANCER
     Dosage: 18 MG, QD
     Route: 048
     Dates: start: 20170216, end: 20170328
  3. AFINITOR [Suspect]
     Active Substance: EVEROLIMUS
     Indication: RENAL CANCER
     Dosage: 5 MG, QD
     Route: 048
     Dates: start: 20170216, end: 20170408

REACTIONS (22)
  - Abdominal distension [Unknown]
  - Weight decreased [Unknown]
  - Condition aggravated [Unknown]
  - Palmar-plantar erythrodysaesthesia syndrome [Unknown]
  - Dyspnoea [Unknown]
  - Pallor [Not Recovered/Not Resolved]
  - Mucosal inflammation [Not Recovered/Not Resolved]
  - Dehydration [Unknown]
  - Abdominal pain [Unknown]
  - Emotional distress [Unknown]
  - Nausea [Unknown]
  - Diarrhoea [Not Recovered/Not Resolved]
  - Fatigue [Not Recovered/Not Resolved]
  - Vomiting [Unknown]
  - Blood thyroid stimulating hormone increased [Not Recovered/Not Resolved]
  - Dizziness [Not Recovered/Not Resolved]
  - Lymphadenopathy [Unknown]
  - Feeling abnormal [Not Recovered/Not Resolved]
  - Balance disorder [Unknown]
  - Cognitive disorder [Not Recovered/Not Resolved]
  - Asthenia [Not Recovered/Not Resolved]
  - Decreased appetite [Unknown]
